FAERS Safety Report 17925476 (Version 1)
Quarter: 2020Q2

REPORT INFORMATION
  Report Type: Report from Study
  Country: None (occurrence: CO)
  Receive Date: 20200623
  Receipt Date: 20200623
  Transmission Date: 20200714
  Serious: Yes (Other)
  Sender: FDA-Public Use
  Company Number: CO-ABBVIE-20K-036-3246608-00

PATIENT
  Sex: Female
  Weight: 65 kg

DRUGS (8)
  1. FOLIC ACID (NON-ABBVIE) [Concomitant]
     Indication: PSORIATIC ARTHROPATHY
     Route: 048
  2. FUROSEMIDE. [Concomitant]
     Active Substance: FUROSEMIDE
     Indication: PRODUCT USED FOR UNKNOWN INDICATION
     Route: 048
     Dates: start: 2010
  3. HUMIRA [Suspect]
     Active Substance: ADALIMUMAB
     Indication: PSORIATIC ARTHROPATHY
     Route: 058
     Dates: start: 20190926, end: 20200227
  4. ACETYLSALICYLIC ACID (NON-ABBVIE) [Concomitant]
     Active Substance: ASPIRIN
     Indication: HYPERTENSION
     Route: 048
     Dates: start: 2016
  5. METOPROLOL (NON-ABBVIE) [Concomitant]
     Indication: HYPERTENSION
     Route: 048
     Dates: start: 2010
  6. LOSARTAN. [Concomitant]
     Active Substance: LOSARTAN
     Indication: HYPERTENSION
     Route: 048
  7. ACETOMINOPHEN (NON-ABBVIE) [Concomitant]
     Indication: PAIN
     Route: 048
  8. METHOTREXATE (NON-ABBVIE) [Concomitant]
     Active Substance: METHOTREXATE
     Indication: PSORIATIC ARTHROPATHY
     Route: 048

REACTIONS (4)
  - Chest pain [Unknown]
  - Cardiovascular disorder [Unknown]
  - Psoriatic arthropathy [Not Recovered/Not Resolved]
  - Chest pain [Recovered/Resolved]

NARRATIVE: CASE EVENT DATE: 2019
